FAERS Safety Report 20517959 (Version 2)
Quarter: 2022Q1

REPORT INFORMATION
  Report Type: Report from Study
  Country: CA (occurrence: CA)
  Receive Date: 20220225
  Receipt Date: 20220331
  Transmission Date: 20220424
  Serious: Yes (Other)
  Sender: FDA-Public Use
  Company Number: CA-JNJFOC-20210645829

PATIENT
  Age: 63 Year
  Sex: Male
  Weight: 91 kg

DRUGS (3)
  1. STELARA [Suspect]
     Active Substance: USTEKINUMAB
     Indication: Colitis ulcerative
     Dosage: ADDITIONAL EXPIRY: 31-OCT-2024
     Route: 058
     Dates: start: 20210519
  2. STELARA [Suspect]
     Active Substance: USTEKINUMAB
     Indication: Crohn^s disease
     Dosage: INDUCTION DOSE
     Route: 042
     Dates: start: 2021
  3. STELARA [Suspect]
     Active Substance: USTEKINUMAB
     Dosage: EXPIRY DATE: 31-MAR-2024?EXPIRY DATE:31-JUL-2024
     Route: 058
     Dates: start: 2021

REACTIONS (12)
  - Haematochezia [Not Recovered/Not Resolved]
  - Intestinal haemorrhage [Unknown]
  - Gastrointestinal inflammation [Not Recovered/Not Resolved]
  - Frequent bowel movements [Not Recovered/Not Resolved]
  - Abdominal pain [Not Recovered/Not Resolved]
  - Defaecation urgency [Not Recovered/Not Resolved]
  - Flatulence [Unknown]
  - Diarrhoea [Not Recovered/Not Resolved]
  - Mucous stools [Not Recovered/Not Resolved]
  - Drug ineffective [Unknown]
  - Off label use [Unknown]
  - Product use issue [Unknown]

NARRATIVE: CASE EVENT DATE: 20210101
